APPROVED DRUG PRODUCT: NITROFURANTOIN
Active Ingredient: NITROFURANTOIN, MACROCRYSTALLINE
Strength: 100MG
Dosage Form/Route: CAPSULE;ORAL
Application: A074336 | Product #003
Applicant: ATHEM HOLDINGS LLC
Approved: Jan 25, 1995 | RLD: No | RS: No | Type: DISCN